FAERS Safety Report 7500152-0 (Version None)
Quarter: 2011Q2

REPORT INFORMATION
  Report Type: 
  Country: None (occurrence: None)
  Receive Date: 20110524
  Receipt Date: 20100409
  Transmission Date: 20111010
  Serious: No
  Sender: FDA-Public Use
  Company Number: US-NOVEN-ALL1-2010-02161

PATIENT

DRUGS (4)
  1. PULMICORT [Concomitant]
     Dosage: UNK, UNKNOWN
     Route: 055
     Dates: start: 20030101
  2. ADVAIR DISKUS 100/50 [Concomitant]
     Dosage: UNK, UNKNOWN
     Route: 055
     Dates: start: 20030101
  3. DAYTRANA [Suspect]
     Dosage: 20 MG, 1X/DAY:QD
     Route: 048
     Dates: start: 20070101
  4. SINGULAIR [Concomitant]
     Dosage: UNK MG, 1X/DAY:QD
     Route: 048
     Dates: start: 20030101

REACTIONS (3)
  - PRODUCT QUALITY ISSUE [None]
  - NO ADVERSE EVENT [None]
  - DRUG ADMINISTERED AT INAPPROPRIATE SITE [None]
